FAERS Safety Report 9404834 (Version 1)
Quarter: 2013Q3

REPORT INFORMATION
  Report Type: Spontaneous
  Country: US (occurrence: None)
  Receive Date: 20130716
  Receipt Date: 20130716
  Transmission Date: 20140515
  Serious: Yes (Other)
  Sender: FDA-Public Use
  Company Number: None

PATIENT
  Age: 71 Year
  Sex: Female
  Weight: 103.42 kg

DRUGS (38)
  1. DICYCLOMINE [Suspect]
     Indication: IRRITABLE BOWEL SYNDROME
     Dosage: 1 BEFORE MEALS + BEDTIME
     Route: 048
     Dates: start: 20130509
  2. METHOCARBAMOL [Suspect]
     Dosage: 4XS DAILY (BREAKFAST, LUNCH, DINNER, BEDTIME)
  3. ASPIRIN [Suspect]
     Dosage: AM
  4. SINGULAR [Suspect]
     Dosage: AM
  5. VERAPAMIL [Suspect]
  6. DETROL LA [Suspect]
     Dosage: 1 AT BEDTIME
  7. METHOCARBAMOL [Suspect]
     Dosage: 2 EVERY 6 HOURS
  8. SALSALATE [Suspect]
  9. DIOVAN [Suspect]
     Dosage: 1 DAILY IN AM
  10. NEXIUM [Suspect]
     Dosage: 1 DAILY IN AM
  11. VITAMIN [Suspect]
     Dosage: 1 DAILY IN AM
  12. VITAMIN C [Suspect]
     Dosage: 1 IN 5 AT P.M.
  13. CALCIUM +D [Suspect]
     Dosage: 2XS DAILY AM + 5 PM
  14. ZETIA [Suspect]
     Dosage: 1 AT 5 P.M.
  15. LUNESTA [Suspect]
  16. TRAMADOL [Suspect]
     Dosage: 1 OR 2 EVERY 6 HRS
  17. LORAZEPAM [Suspect]
  18. LANTUS [Suspect]
     Dosage: 5 P.M.
  19. HUMALOG [Suspect]
  20. FLAX SEED OIL [Suspect]
     Dosage: 1 AT 5 P.M.
  21. BENZONATATE [Suspect]
     Dosage: PRN
  22. LYRICA [Suspect]
     Dosage: 10 AM + 10 PM
  23. TRIAMCINOLONE [Suspect]
     Dosage: PRN
  24. HYDROQUINONE [Suspect]
     Dosage: ON DARK SPOTS
  25. CLOBETASOL PROPIONATE [Suspect]
     Dosage: PRN (STOMACH FOLDS)
  26. ECONAZOLE [Suspect]
     Dosage: PRN ON FOLDS
  27. RETINA [Concomitant]
  28. BETAMETHASONE [Suspect]
     Dosage: PRN
  29. FLOVENT [Suspect]
     Dosage: 2 PUFFS PRN
  30. ESTRACE [Suspect]
     Dosage: FINGER TIP SIZE
  31. POTASSIUM GLUCONATE [Suspect]
     Dosage: IN PM
  32. MAGNESIUM [Suspect]
     Dosage: IN PM
  33. B COMPLEX [Suspect]
     Dosage: 6=300, IN PM
  34. GLUCOSAMINE + CHONDROITIN [Suspect]
     Dosage: 1500/2400/500 IN AM
  35. GENTEAL [Suspect]
     Dosage: 1 3X^S
  36. BUTALBITAL/APAP/CAFFEINE [Suspect]
     Dosage: 50/325/40 1 OR 2 EVERY 6 HOURS
  37. PATANOL [Suspect]
     Dosage: 1 DROP PRN
  38. ERYTHROMYCIN [Suspect]

REACTIONS (1)
  - Muscle spasms [None]
